FAERS Safety Report 24070877 (Version 1)
Quarter: 2024Q3

REPORT INFORMATION
  Report Type: Spontaneous
  Country: US (occurrence: US)
  Receive Date: 20240710
  Receipt Date: 20240710
  Transmission Date: 20241017
  Serious: No
  Sender: ROCHE
  Company Number: US-ROCHE-3518534

PATIENT
  Sex: Female
  Weight: 45.36 kg

DRUGS (4)
  1. PHESGO [Suspect]
     Active Substance: HYALURONIDASE-ZZXF\PERTUZUMAB\TRASTUZUMAB
     Indication: HER2 positive breast cancer
     Route: 058
     Dates: start: 20230428
  2. LETROZOLE [Concomitant]
     Active Substance: LETROZOLE
     Route: 048
  3. CALCIUM [Concomitant]
     Active Substance: CALCIUM
     Route: 048
  4. MAGNESIUM [Concomitant]
     Active Substance: MAGNESIUM
     Route: 048

REACTIONS (33)
  - Constipation [Unknown]
  - Diarrhoea [Unknown]
  - Pain in extremity [Unknown]
  - Neuralgia [Unknown]
  - Arthralgia [Unknown]
  - Vision blurred [Not Recovered/Not Resolved]
  - Lip dry [Unknown]
  - Skin exfoliation [Unknown]
  - Nasal dryness [Unknown]
  - Vulvovaginal dryness [Unknown]
  - Epistaxis [Unknown]
  - Immunodeficiency [Unknown]
  - Urinary tract infection [Recovered/Resolved]
  - Cough [Unknown]
  - Alopecia [Unknown]
  - Pruritus [Unknown]
  - Fatigue [Unknown]
  - Memory impairment [Unknown]
  - Dizziness [Unknown]
  - Balance disorder [Unknown]
  - Anxiety [Unknown]
  - Irritability [Unknown]
  - Lacrimation increased [Not Recovered/Not Resolved]
  - Muscle contracture [Not Recovered/Not Resolved]
  - Knee deformity [Not Recovered/Not Resolved]
  - Ill-defined disorder [Not Recovered/Not Resolved]
  - COVID-19 [Recovered/Resolved]
  - Ocular hyperaemia [Recovered/Resolved]
  - Ear disorder [Recovered/Resolved]
  - Madarosis [Unknown]
  - Sensory disturbance [Not Recovered/Not Resolved]
  - Muscular weakness [Unknown]
  - Nail disorder [Unknown]

NARRATIVE: CASE EVENT DATE: 20231001
